FAERS Safety Report 16872516 (Version 1)
Quarter: 2019Q4

REPORT INFORMATION
  Report Type: Report from Study
  Country: CA (occurrence: CA)
  Receive Date: 20191001
  Receipt Date: 20191001
  Transmission Date: 20200122
  Serious: Yes (Hospitalization, Other)
  Sender: FDA-Public Use
  Company Number: CA-ORION CORPORATION ORION PHARMA-TREX2019-3809

PATIENT
  Age: 54 Year
  Sex: Female

DRUGS (16)
  1. COSENTYX [Suspect]
     Active Substance: SECUKINUMAB
     Indication: PSORIASIS
     Route: 058
  2. HUMIRA [Concomitant]
     Active Substance: ADALIMUMAB
     Route: 065
  3. BEESWAX [Concomitant]
     Active Substance: YELLOW WAX
     Route: 065
  4. BETAMETHASONE DIPROPIONATE;CALCIPOTRIOL [Concomitant]
     Route: 065
  5. CIPROFLOXACIN. [Suspect]
     Active Substance: CIPROFLOXACIN
     Indication: SEPTIC SHOCK
     Route: 065
  6. COSENTYX [Suspect]
     Active Substance: SECUKINUMAB
     Route: 058
  7. COSENTYX [Suspect]
     Active Substance: SECUKINUMAB
     Route: 058
  8. CLOBETASOL [Concomitant]
     Active Substance: CLOBETASOL
     Route: 065
  9. PSORALEN [Concomitant]
     Active Substance: PSORALEN
     Route: 065
  10. CICLOSPORIN [Suspect]
     Active Substance: CYCLOSPORINE
     Indication: PRODUCT USED FOR UNKNOWN INDICATION
     Route: 065
  11. PROTOPIC [Concomitant]
     Active Substance: TACROLIMUS
     Route: 065
  12. METHOTREXATE (TRADE NAME UNKNOWN) [Suspect]
     Active Substance: METHOTREXATE
     Indication: PRODUCT USED FOR UNKNOWN INDICATION
     Route: 065
  13. ENBREL [Concomitant]
     Active Substance: ETANERCEPT
     Route: 065
  14. INFLUENZA VACCINE [Concomitant]
     Active Substance: INFLUENZA VIRUS VACCINE
     Route: 065
  15. STELARA [Concomitant]
     Active Substance: USTEKINUMAB
     Route: 065
  16. DOVONEX [Concomitant]
     Active Substance: CALCIPOTRIENE
     Route: 065

REACTIONS (7)
  - Septic shock [Unknown]
  - Skin plaque [Unknown]
  - Swelling [Unknown]
  - Paraesthesia [Unknown]
  - Urticaria [Unknown]
  - Pathogen resistance [Unknown]
  - Gallbladder rupture [Unknown]
